FAERS Safety Report 11717185 (Version 2)
Quarter: 2015Q4

REPORT INFORMATION
  Report Type: Spontaneous
  Country: JP (occurrence: JP)
  Receive Date: 20151109
  Receipt Date: 20151203
  Transmission Date: 20160304
  Serious: Yes (Other)
  Sender: FDA-Public Use
  Company Number: JP-BAYER-2015-457057

PATIENT
  Age: 2 Year
  Sex: Female

DRUGS (4)
  1. METHYLPREDNISOLONE. [Concomitant]
     Active Substance: METHYLPREDNISOLONE
     Indication: KAWASAKI^S DISEASE
  2. ACETYLSALICYLIC ACID({=100 MG) [Suspect]
     Active Substance: ASPIRIN
     Indication: KAWASAKI^S DISEASE
     Route: 048
  3. IMMUNOGLOBULIN HUMAN [Concomitant]
     Active Substance: HUMAN IMMUNOGLOBULIN G
     Indication: KAWASAKI^S DISEASE
     Dosage: UNK
  4. PREDNISOLONE. [Concomitant]
     Active Substance: PREDNISOLONE
     Indication: KAWASAKI^S DISEASE

REACTIONS (7)
  - Lymphocyte morphology abnormal [Recovering/Resolving]
  - Drug reaction with eosinophilia and systemic symptoms [Recovering/Resolving]
  - Hepatic enzyme increased [Recovering/Resolving]
  - C-reactive protein increased [Recovering/Resolving]
  - Eosinophil count increased [Recovering/Resolving]
  - Pyrexia [Recovering/Resolving]
  - C-reactive protein normal [Recovering/Resolving]
